FAERS Safety Report 13268774 (Version 1)
Quarter: 2017Q1

REPORT INFORMATION
  Report Type: Spontaneous
  Country: US (occurrence: US)
  Receive Date: 20170224
  Receipt Date: 20170224
  Transmission Date: 20170428
  Serious: Yes (Hospitalization)
  Sender: FDA-Public Use
  Company Number: US-ELI_LILLY_AND_COMPANY-US201702005527

PATIENT
  Age: 57 Year
  Sex: Female

DRUGS (2)
  1. CARBOPLATIN. [Concomitant]
     Active Substance: CARBOPLATIN
     Dosage: UNK, UNKNOWN
     Route: 065
     Dates: start: 20160208, end: 20160810
  2. ALIMTA [Suspect]
     Active Substance: PEMETREXED DISODIUM
     Indication: NON-SMALL CELL LUNG CANCER
     Dosage: 920 MG, UNKNOWN
     Route: 065
     Dates: start: 20160208, end: 20160810

REACTIONS (17)
  - Cough [Recovered/Resolved]
  - Vomiting [Unknown]
  - Colitis [Unknown]
  - Hypoaesthesia [Unknown]
  - Headache [Unknown]
  - Fatigue [Unknown]
  - Constipation [Unknown]
  - Off label use [Unknown]
  - Neutrophil count decreased [Unknown]
  - Blood pressure increased [Unknown]
  - Gastrointestinal haemorrhage [Unknown]
  - Nasal congestion [Recovered/Resolved]
  - Headache [Unknown]
  - Anaemia [Unknown]
  - Nausea [Unknown]
  - Pyrexia [Recovered/Resolved]
  - Abdominal pain [Unknown]

NARRATIVE: CASE EVENT DATE: 20160216
